FAERS Safety Report 21549690 (Version 2)
Quarter: 2022Q4

REPORT INFORMATION
  Report Type: Spontaneous
  Country: US (occurrence: US)
  Receive Date: 20221103
  Receipt Date: 20221121
  Transmission Date: 20230113
  Serious: No
  Sender: FDA-Public Use
  Company Number: US-SA-SAC20221102000574

PATIENT
  Age: 72 Year
  Sex: Male
  Weight: 96.5 kg

DRUGS (4)
  1. JEVTANA [Suspect]
     Active Substance: CABAZITAXEL
  2. PEPCID [Concomitant]
     Active Substance: FAMOTIDINE
  3. DEXAMETHASONE [Concomitant]
     Active Substance: DEXAMETHASONE
  4. ZOFRAN [Concomitant]
     Active Substance: ONDANSETRON HYDROCHLORIDE

REACTIONS (5)
  - Chest pain [Recovered/Resolved]
  - Chest discomfort [Unknown]
  - Arthralgia [Recovered/Resolved]
  - Bronchospasm [Recovered/Resolved]
  - Back pain [Unknown]

NARRATIVE: CASE EVENT DATE: 20221026
